FAERS Safety Report 7555742-6 (Version None)
Quarter: 2011Q2

REPORT INFORMATION
  Report Type: 
  Country: None (occurrence: None)
  Receive Date: 20110617
  Receipt Date: 20110609
  Transmission Date: 20111010
  Serious: Yes (Other)
  Sender: FDA-Public Use
  Company Number: US-RB-022719-11

PATIENT
  Age: 41 Year
  Sex: Female

DRUGS (4)
  1. KEPPRA [Concomitant]
     Indication: EPILEPSY
     Route: 065
  2. SUBOXONE [Suspect]
     Indication: DRUG DEPENDENCE
     Dosage: SUBLINGUAL FILM
     Route: 060
     Dates: start: 20110120
  3. TOPAMAX [Concomitant]
     Indication: EPILEPSY
     Route: 065
  4. ALPRAZOLAM [Concomitant]
     Indication: EPILEPSY
     Route: 065

REACTIONS (3)
  - INTENTIONAL DRUG MISUSE [None]
  - CONDITION AGGRAVATED [None]
  - DRUG WITHDRAWAL SYNDROME [None]
